FAERS Safety Report 26069167 (Version 1)
Quarter: 2025Q4

REPORT INFORMATION
  Report Type: Spontaneous
  Country: US (occurrence: US)
  Receive Date: 20251120
  Receipt Date: 20251120
  Transmission Date: 20260117
  Serious: Yes (Other)
  Sender: MERZ
  Company Number: US-MERZ PHARMACEUTICALS LLC-ACO_179767_2025

PATIENT

DRUGS (2)
  1. INBRIJA [Suspect]
     Active Substance: LEVODOPA
     Indication: Tremor
     Dosage: UNK
     Route: 065
  2. INBRIJA [Suspect]
     Active Substance: LEVODOPA
     Dosage: UNK
     Route: 065

REACTIONS (4)
  - Ophthalmic herpes zoster [Unknown]
  - Dysphonia [Unknown]
  - Device issue [Unknown]
  - Wrong technique in product usage process [Unknown]
